FAERS Safety Report 19889627 (Version 1)
Quarter: 2021Q3

REPORT INFORMATION
  Report Type: Spontaneous
  Country: FR (occurrence: FR)
  Receive Date: 20210927
  Receipt Date: 20210927
  Transmission Date: 20211014
  Serious: Yes (Life-Threatening, Hospitalization, Other)
  Sender: FDA-Public Use
  Company Number: FR-MYLANLABS-2021M1066428

PATIENT
  Age: 56 Year
  Sex: Female

DRUGS (10)
  1. CARBOPLATIN. [Suspect]
     Active Substance: CARBOPLATIN
     Dosage: UNK
     Route: 065
     Dates: end: 201704
  2. CAELYX [Suspect]
     Active Substance: DOXORUBICIN HYDROCHLORIDE
     Indication: OVARIAN CANCER STAGE IV
     Dosage: UNK
     Route: 065
     Dates: start: 2017, end: 2017
  3. CARBOPLATIN. [Suspect]
     Active Substance: CARBOPLATIN
     Indication: OVARIAN CANCER STAGE IV
     Dosage: UNK
     Route: 065
     Dates: start: 2017, end: 2017
  4. CARBOPLATIN. [Suspect]
     Active Substance: CARBOPLATIN
     Dosage: UNK
     Route: 065
     Dates: start: 202005, end: 202009
  5. ENDOXAN                            /00021101/ [Suspect]
     Active Substance: CYCLOPHOSPHAMIDE
     Indication: OVARIAN CANCER STAGE IV
     Dosage: UNK
     Route: 065
     Dates: start: 202005, end: 202009
  6. LYNPARZA [Suspect]
     Active Substance: OLAPARIB
     Indication: OVARIAN CANCER STAGE IV
     Dosage: UNK
     Route: 048
     Dates: start: 201711, end: 20190627
  7. CARBOPLATIN. [Suspect]
     Active Substance: CARBOPLATIN
     Dosage: UNK
     Route: 065
     Dates: start: 201907, end: 2019
  8. GEMZAR [Suspect]
     Active Substance: GEMCITABINE HYDROCHLORIDE
     Indication: OVARIAN CANCER STAGE IV
     Dosage: UNK
     Route: 065
     Dates: start: 201907, end: 2019
  9. TAXOL [Suspect]
     Active Substance: PACLITAXEL
     Dosage: UNK
     Route: 065
     Dates: start: 2021, end: 202104
  10. TAXOL [Suspect]
     Active Substance: PACLITAXEL
     Indication: OVARIAN CANCER STAGE IV
     Dosage: UNK
     Route: 065
     Dates: end: 201704

REACTIONS (9)
  - Metastases to peritoneum [Not Recovered/Not Resolved]
  - Metastases to lymph nodes [Unknown]
  - General physical health deterioration [Unknown]
  - Blast cells present [Unknown]
  - Anaemia [Unknown]
  - Acute myeloid leukaemia [Unknown]
  - Metastases to pleura [Not Recovered/Not Resolved]
  - Thrombocytopenia [Unknown]
  - Asthenia [Unknown]

NARRATIVE: CASE EVENT DATE: 2017
